FAERS Safety Report 4677063-1 (Version None)
Quarter: 2005Q2

REPORT INFORMATION
  Report Type: 
  Country: None (occurrence: None)
  Receive Date: 20050525
  Receipt Date: 20050225
  Transmission Date: 20051028
  Serious: No
  Sender: FDA-Public Use
  Company Number: SU-2005-003255

PATIENT
  Age: 46 Year
  Sex: Male
  Weight: 82.5547 kg

DRUGS (4)
  1. BENICAR [Suspect]
     Indication: HYPERTENSION
     Dosage: 20 MG QD PO
     Route: 048
     Dates: start: 20050218
  2. ATENOLOL [Concomitant]
  3. PRILOSEC [Concomitant]
  4. ZYRTEC [Concomitant]

REACTIONS (6)
  - ABDOMINAL PAIN [None]
  - DIZZINESS [None]
  - EPISTAXIS [None]
  - HEADACHE [None]
  - HEART RATE INCREASED [None]
  - PROCTALGIA [None]
